FAERS Safety Report 23302917 (Version 1)
Quarter: 2023Q4

REPORT INFORMATION
  Report Type: Spontaneous
  Country: US (occurrence: US)
  Receive Date: 20231215
  Receipt Date: 20231215
  Transmission Date: 20240110
  Serious: No
  Sender: FDA-Public Use
  Company Number: US-PRIMUS-2022-US-030241

PATIENT
  Age: 73 Year
  Sex: Male

DRUGS (1)
  1. IMPOYZ [Suspect]
     Active Substance: CLOBETASOL PROPIONATE
     Indication: Rash
     Dosage: PRESENT USE VERY MINIMALLY, APPLIED SPARINGLY TO RASH ON FEET TWICE A DAY ONLY WHEN ACTIVE RASH IS P
     Route: 061
     Dates: start: 20221213

REACTIONS (3)
  - Application site pain [Unknown]
  - Application site pruritus [Unknown]
  - Product use in unapproved indication [Unknown]
